FAERS Safety Report 4451241-9 (Version None)
Quarter: 2004Q3

REPORT INFORMATION
  Report Type: 
  Country: None (occurrence: None)
  Receive Date: 20040915
  Receipt Date: 20040915
  Transmission Date: 20050211
  Serious: No
  Sender: FDA-Public Use
  Company Number: None

PATIENT
  Sex: Female
  Weight: 63.5036 kg

DRUGS (1)
  1. ZOLOFT [Suspect]
     Dosage: 100 MG

REACTIONS (7)
  - BIPOLAR DISORDER [None]
  - DRUG EFFECT DECREASED [None]
  - HOMICIDAL IDEATION [None]
  - LOSS OF EMPLOYMENT [None]
  - PARANOIA [None]
  - PSYCHOTIC DISORDER [None]
  - THEFT [None]
